FAERS Safety Report 18031225 (Version 1)
Quarter: 2020Q3

REPORT INFORMATION
  Report Type: Report from Study
  Country: CA (occurrence: CA)
  Receive Date: 20200716
  Receipt Date: 20200716
  Transmission Date: 20201103
  Serious: Yes (Other)
  Sender: FDA-Public Use
  Company Number: CA-ACCORD-190523

PATIENT
  Age: 35 Year
  Sex: Male

DRUGS (11)
  1. CELEBREX [Concomitant]
     Active Substance: CELECOXIB
     Route: 065
  2. ENBREL [Concomitant]
     Active Substance: ETANERCEPT
     Route: 065
  3. REMICADE [Concomitant]
     Active Substance: INFLIXIMAB
     Route: 042
  4. COSENTYX [Suspect]
     Active Substance: SECUKINUMAB
     Indication: ANKYLOSING SPONDYLITIS
     Dosage: 1 EVERY 1 WEEKS
     Route: 058
  5. METHADONE [Concomitant]
     Active Substance: METHADONE HYDROCHLORIDE
     Route: 065
  6. NAPROXEN. [Concomitant]
     Active Substance: NAPROXEN
     Route: 065
  7. INDOMETACIN [Suspect]
     Active Substance: INDOMETHACIN
     Indication: PRODUCT USED FOR UNKNOWN INDICATION
     Route: 065
  8. COSENTYX [Suspect]
     Active Substance: SECUKINUMAB
     Indication: ANKYLOSING SPONDYLITIS
     Route: 065
  9. METHOTREXATE. [Suspect]
     Active Substance: METHOTREXATE
     Indication: PRODUCT USED FOR UNKNOWN INDICATION
     Route: 065
  10. HUMIRA [Concomitant]
     Active Substance: ADALIMUMAB
     Dosage: SUBCUTANEOUS SOLUTION
     Route: 058
  11. IBUPROFEN. [Concomitant]
     Active Substance: IBUPROFEN
     Route: 065

REACTIONS (7)
  - Drug ineffective [Unknown]
  - Fatigue [Unknown]
  - Malaise [Unknown]
  - Ankylosing spondylitis [Unknown]
  - Nausea [Unknown]
  - Arthropathy [Unknown]
  - Therapeutic response shortened [Unknown]
